FAERS Safety Report 22248295 (Version 3)
Quarter: 2023Q4

REPORT INFORMATION
  Report Type: Report from Study
  Country: ES (occurrence: None)
  Receive Date: 20230425
  Receipt Date: 20231002
  Transmission Date: 20240110
  Serious: Yes (Other)
  Sender: FDA-Public Use
  Company Number: ES-ROCHE-3333630

PATIENT
  Age: 75 Year
  Sex: Male
  Weight: 102 kg

DRUGS (6)
  1. ATEZOLIZUMAB [Suspect]
     Active Substance: ATEZOLIZUMAB
     Indication: Bladder transitional cell carcinoma
     Dosage: ON, THE FOLLOWING DATE HE TOOK THE SUBSEQUENT DOSE OF 01/SEP/2022, 22/SEP/2022/ 13/OCT/2022, 27/OCT
     Route: 041
     Dates: start: 20220811
  2. BCG VACCINE [Suspect]
     Active Substance: BCG VACCINE
     Indication: Bladder transitional cell carcinoma
     Dosage: CUMULATIVE DOSE 600 ML
     Route: 065
     Dates: start: 20220811, end: 20230216
  3. SIMVASTATIN [Concomitant]
     Active Substance: SIMVASTATIN
     Route: 048
  4. METFORMIN [Concomitant]
     Active Substance: METFORMIN HYDROCHLORIDE
     Route: 048
  5. LERCANIDIPINE [Concomitant]
     Active Substance: LERCANIDIPINE
     Route: 048
  6. IRBESARTAN [Concomitant]
     Active Substance: IRBESARTAN
     Route: 048

REACTIONS (1)
  - Epididymal neoplasm [Recovered/Resolved]

NARRATIVE: CASE EVENT DATE: 20230302
